FAERS Safety Report 16702926 (Version 4)
Quarter: 2019Q3

REPORT INFORMATION
  Report Type: Spontaneous
  Country: CN (occurrence: CN)
  Receive Date: 20190814
  Receipt Date: 20190909
  Transmission Date: 20191004
  Serious: Yes (Death)
  Sender: FDA-Public Use
  Company Number: CN-PFIZER INC-2019337364

PATIENT
  Age: 44 Year
  Sex: Male
  Weight: 60 kg

DRUGS (5)
  1. CELEBREX [Suspect]
     Active Substance: CELECOXIB
     Indication: ANALGESIC THERAPY
  2. YI YU [Suspect]
     Active Substance: EPERISONE HYDROCHLORIDE
     Indication: THERAPEUTIC PROCEDURE
  3. CELEBREX [Suspect]
     Active Substance: CELECOXIB
     Indication: ANTIINFLAMMATORY THERAPY
  4. YI YU [Suspect]
     Active Substance: EPERISONE HYDROCHLORIDE
     Indication: MUSCULOSKELETAL PAIN
     Dosage: 50.000 MG, 3X/DAY
     Route: 048
     Dates: start: 20190521, end: 20190522
  5. CELEBREX [Suspect]
     Active Substance: CELECOXIB
     Indication: MUSCULOSKELETAL PAIN
     Dosage: 200 MG, 1X/DAY
     Route: 048
     Dates: start: 20190521, end: 20190522

REACTIONS (3)
  - Pruritus generalised [Unknown]
  - Death [Fatal]
  - Rash generalised [Unknown]

NARRATIVE: CASE EVENT DATE: 20190522
